FAERS Safety Report 7035301-4 (Version None)
Quarter: 2010Q4

REPORT INFORMATION
  Report Type: 
  Country: None (occurrence: None)
  Receive Date: 20101008
  Receipt Date: 20100928
  Transmission Date: 20110411
  Serious: Yes (Other)
  Sender: FDA-Public Use
  Company Number: B0676991A

PATIENT
  Age: 66 Year
  Sex: Male
  Weight: 100 kg

DRUGS (8)
  1. AVANDAMET [Suspect]
     Dosage: 4MG TWICE PER DAY
     Route: 048
     Dates: start: 20020101
  2. AMAREL [Concomitant]
     Route: 048
  3. LANTUS [Concomitant]
     Dosage: 24UNIT PER DAY
     Route: 058
     Dates: start: 20090101
  4. METFORMIN HCL [Concomitant]
     Dosage: 1TAB PER DAY
     Route: 048
  5. CORENITEC [Concomitant]
     Route: 048
  6. PHYSIOTENS [Concomitant]
     Route: 048
  7. PRAVIGARD PAC (COPACKAGED) [Concomitant]
     Route: 048
  8. TRAMADOL [Concomitant]
     Route: 048

REACTIONS (5)
  - CAROTID ARTERY STENOSIS [None]
  - CLAVICLE FRACTURE [None]
  - FALL [None]
  - LOSS OF CONSCIOUSNESS [None]
  - VERTIGO [None]
